FAERS Safety Report 12774335 (Version 3)
Quarter: 2017Q3

REPORT INFORMATION
  Report Type: Report from Study
  Country: US (occurrence: US)
  Receive Date: 20160923
  Receipt Date: 20170727
  Transmission Date: 20171127
  Serious: No
  Sender: FDA-Public Use
  Company Number: PHEH2016US024374

PATIENT
  Age: 36 Year
  Sex: Male

DRUGS (1)
  1. AFINITOR [Suspect]
     Active Substance: EVEROLIMUS
     Indication: KIDNEY ANGIOMYOLIPOMA
     Dosage: 10 MG, QD
     Route: 048
     Dates: start: 20160729

REACTIONS (3)
  - Nasal congestion [Unknown]
  - Vitamin D decreased [Unknown]
  - Enlarged uvula [Recovering/Resolving]

NARRATIVE: CASE EVENT DATE: 20160906
